FAERS Safety Report 5987097-2 (Version None)
Quarter: 2008Q4

REPORT INFORMATION
  Report Type: 
  Country: None (occurrence: None)
  Receive Date: 20081126
  Receipt Date: 20071004
  Transmission Date: 20090506
  Serious: Yes (Hospitalization)
  Sender: FDA-Public Use
  Company Number: 2008BH002657

PATIENT
  Age: 50 Year
  Sex: Male

DRUGS (3)
  1. DIANEAL [Suspect]
     Indication: PERITONEAL DIALYSIS
     Dosage: 2000 ML; 5X A DAY; IP
     Route: 033
     Dates: start: 20070601
  2. BLOOD PRESSURE MEDICATIONS [Concomitant]
  3. . [Concomitant]

REACTIONS (1)
  - HYPERTENSION [None]
